FAERS Safety Report 20808637 (Version 2)
Quarter: 2022Q2

REPORT INFORMATION
  Report Type: Report from Study
  Country: CA (occurrence: CA)
  Receive Date: 20220510
  Receipt Date: 20220621
  Transmission Date: 20220721
  Serious: Yes (Other)
  Sender: FDA-Public Use
  Company Number: CA-PFIZER INC-202200650281

PATIENT
  Age: 68 Year
  Sex: Male

DRUGS (12)
  1. RITUXIMAB [Suspect]
     Active Substance: RITUXIMAB
     Indication: Rheumatoid arthritis
     Dosage: 1000 MG
     Route: 042
  2. ASPIRIN [Concomitant]
     Active Substance: ASPIRIN
     Dosage: 80 MG, 1X/DAY
     Route: 048
  3. ATIVAN [Concomitant]
     Active Substance: LORAZEPAM
     Dosage: 1 MG, 1X/DAY
     Route: 048
  4. ATORVASTATIN [Concomitant]
     Active Substance: ATORVASTATIN
     Indication: Blood cholesterol
     Dosage: 20 MG, 1X/DAY
     Route: 048
  5. DICYCLOMINE HYDROCHLORIDE [Concomitant]
     Active Substance: DICYCLOMINE HYDROCHLORIDE
     Dosage: 10 MG, 3X/DAY
     Route: 048
  6. DOCUSATE SODIUM [Concomitant]
     Active Substance: DOCUSATE SODIUM
     Indication: Constipation
     Dosage: 200 MG, 2X/DAY
     Route: 048
  7. LANSOPRAZOLE [Concomitant]
     Active Substance: LANSOPRAZOLE
     Indication: Ill-defined disorder
     Dosage: 30 MG, 1X/DAY
     Route: 048
  8. POLYETHYLENE GLYCOL 3350 [Concomitant]
     Active Substance: POLYETHYLENE GLYCOL 3350
     Indication: Constipation
     Dosage: 17 G, 1X/DAY
     Route: 048
  9. NAPROXEN [Concomitant]
     Active Substance: NAPROXEN
     Dosage: 500 MG, 2X/DAY
     Route: 048
  10. PREGABALIN [Concomitant]
     Active Substance: PREGABALIN
     Dosage: 50 MG, 1X/DAY
     Route: 048
  11. SENNOSIDES [Concomitant]
     Active Substance: SENNOSIDES
     Indication: Constipation
     Dosage: 17.2 MG, 1X/DAY
     Route: 048
  12. SOLIFENACIN [Concomitant]
     Active Substance: SOLIFENACIN
     Dosage: 5 MG, 1X/DAY
     Route: 048

REACTIONS (4)
  - Gastrointestinal disorder [Unknown]
  - Intestinal obstruction [Unknown]
  - Cataract [Unknown]
  - Wound [Unknown]
